FAERS Safety Report 23217664 (Version 1)
Quarter: 2023Q4

REPORT INFORMATION
  Report Type: Spontaneous
  Country: SK (occurrence: SK)
  Receive Date: 20231122
  Receipt Date: 20231122
  Transmission Date: 20240110
  Serious: Yes (Other)
  Sender: FDA-Public Use
  Company Number: SK-002147023-NVSC2023SK248275

PATIENT
  Age: 74 Year
  Sex: Female

DRUGS (4)
  1. RIBOCICLIB [Suspect]
     Active Substance: RIBOCICLIB
     Indication: Breast cancer
     Dosage: 200 G, TID (DAILY FOR 21 DAYS THEN 7 DAYS BREAK)
     Route: 048
     Dates: start: 2022
  2. FULVESTRANT [Concomitant]
     Active Substance: FULVESTRANT
     Indication: Breast cancer
     Dosage: 250 MG, BID
     Route: 030
     Dates: start: 20220826, end: 20220826
  3. FULVESTRANT [Concomitant]
     Active Substance: FULVESTRANT
     Dosage: UNK
     Route: 030
     Dates: start: 20220909, end: 20220909
  4. FULVESTRANT [Concomitant]
     Active Substance: FULVESTRANT
     Dosage: UNK, 28D (EVERY 28  DAYS)
     Route: 065

REACTIONS (3)
  - Leukopenia [Unknown]
  - Bronchiectasis [Unknown]
  - Diarrhoea [Recovering/Resolving]
